FAERS Safety Report 8472238-8 (Version None)
Quarter: 2012Q2

REPORT INFORMATION
  Report Type: 
  Country: None (occurrence: None)
  Receive Date: 20120627
  Receipt Date: 20120612
  Transmission Date: 20120825
  Serious: Yes (Hospitalization)
  Sender: FDA-Public Use
  Company Number: IT-PURDUE-GBR-2012-0010786

PATIENT
  Age: 91 Year
  Sex: Female

DRUGS (8)
  1. BUPRENORPHINE HCL [Interacting]
     Indication: PAIN
     Dosage: 35 MCG, Q1H
     Route: 062
  2. LANSOPRAZOLE [Suspect]
     Indication: PRODUCT USED FOR UNKNOWN INDICATION
     Dosage: 30 MG, UNK
     Route: 065
  3. ACETYLSALICYLIC ACID SRT [Suspect]
     Indication: PLATELET AGGREGATION INHIBITION
     Dosage: 100 MG, DAILY
     Route: 048
  4. TRAMADOL HCL [Interacting]
     Indication: PRODUCT USED FOR UNKNOWN INDICATION
     Dosage: UNK DROP, PRN
     Route: 065
  5. GLYBURIDE AND METFORMIN HYDROCHLORIDE [Suspect]
     Indication: TYPE 2 DIABETES MELLITUS
     Dosage: 400MG/2.5MG , TID
     Route: 048
  6. LEVOFLOXACIN [Suspect]
     Indication: BACTERIAL INFECTION
     Dosage: 500 MG, DAILY
     Route: 048
  7. NADROPARIN [Interacting]
     Indication: ISCHAEMIC STROKE
     Dosage: 3800 UI, DAILY
     Route: 058
  8. ENALAPRIL MALEATE AND HYDROCHLOROTHIAZIDE [Suspect]
     Indication: HYPERTENSION
     Dosage: 20 MG / 12.5 MG, DAILY

REACTIONS (2)
  - HYPOGLYCAEMIC COMA [None]
  - DRUG INTERACTION [None]
